FAERS Safety Report 20964018 (Version 1)
Quarter: 2022Q2

REPORT INFORMATION
  Report Type: Spontaneous
  Country: US (occurrence: None)
  Receive Date: 20220615
  Receipt Date: 20220615
  Transmission Date: 20220720
  Serious: No
  Sender: FDA-Public Use
  Company Number: None

PATIENT
  Sex: Female

DRUGS (1)
  1. KISQALI [Suspect]
     Active Substance: RIBOCICLIB
     Indication: Breast cancer
     Dosage: FREQUENCY : DAILY; FOR 21 DAYS?
     Route: 048
     Dates: start: 20220525

REACTIONS (3)
  - Alopecia [None]
  - Nausea [None]
  - White blood cell count decreased [None]
